FAERS Safety Report 7142101-3 (Version None)
Quarter: 2010Q4

REPORT INFORMATION
  Report Type: 
  Country: None (occurrence: None)
  Receive Date: 20101203
  Receipt Date: 20101203
  Transmission Date: 20110411
  Serious: Yes (Hospitalization)
  Sender: FDA-Public Use
  Company Number: None

PATIENT
  Age: 63 Year
  Sex: Male
  Weight: 69 kg

DRUGS (7)
  1. TEMSIROLIMUS [Suspect]
     Indication: NON-SMALL CELL LUNG CANCER
     Dosage: 25 MG ONCE Q WK IV
     Route: 042
     Dates: start: 20101020, end: 20101201
  2. VINORELBINE [Suspect]
     Indication: NON-SMALL CELL LUNG CANCER
     Dosage: 20 MG/M2 ONCE Q 2 WKS IV
     Route: 042
     Dates: start: 20101020, end: 20101201
  3. LASIX [Concomitant]
  4. NORVASC [Concomitant]
  5. SYNTHROID [Concomitant]
  6. MEGACE [Concomitant]
  7. CRESTOR [Concomitant]

REACTIONS (14)
  - CHILLS [None]
  - DECREASED APPETITE [None]
  - DEHYDRATION [None]
  - DYSGEUSIA [None]
  - DYSPNOEA [None]
  - FATIGUE [None]
  - HAEMOGLOBIN DECREASED [None]
  - HAEMORRHOIDS [None]
  - HEART RATE IRREGULAR [None]
  - NEUTROPENIA [None]
  - PLATELET COUNT DECREASED [None]
  - PNEUMONIA [None]
  - PROCTALGIA [None]
  - STOMATITIS [None]
